FAERS Safety Report 8273821-5 (Version None)
Quarter: 2012Q2

REPORT INFORMATION
  Report Type: 
  Country: None (occurrence: None)
  Receive Date: 20120411
  Receipt Date: 20120405
  Transmission Date: 20120825
  Serious: Yes (Other)
  Sender: FDA-Public Use
  Company Number: PHHY2012BR029890

PATIENT
  Sex: Female

DRUGS (3)
  1. CLINFAR [Concomitant]
     Indication: BLOOD CHOLESTEROL
  2. EXFORGE [Suspect]
     Indication: HYPERTENSION
     Dosage: 1 DF (160/5 MG), A DAY
     Route: 048
  3. HYDROCHLOROTHIAZIDE [Concomitant]

REACTIONS (3)
  - HYPERTENSION [None]
  - DENGUE FEVER [None]
  - BLOOD PRESSURE DECREASED [None]
